FAERS Safety Report 7438479-3 (Version None)
Quarter: 2011Q2

REPORT INFORMATION
  Report Type: 
  Country: None (occurrence: None)
  Receive Date: 20110426
  Receipt Date: 20110422
  Transmission Date: 20111010
  Serious: Yes (Other)
  Sender: FDA-Public Use
  Company Number: JP-PFIZER INC-2011084826

PATIENT
  Age: 21 Year
  Sex: Female

DRUGS (4)
  1. METHYCOBAL [Concomitant]
     Route: 048
  2. NEUROTROPIN [Concomitant]
     Route: 048
  3. LYRICA [Suspect]
     Indication: NEURALGIA
     Dosage: UNK
     Route: 048
     Dates: start: 20101213
  4. MUCOSTA [Concomitant]
     Route: 048

REACTIONS (1)
  - CANDIDIASIS [None]
